FAERS Safety Report 14602840 (Version 7)
Quarter: 2018Q3

REPORT INFORMATION
  Report Type: Report from Study
  Country: DE (occurrence: DE)
  Receive Date: 20180306
  Receipt Date: 20180723
  Transmission Date: 20181010
  Serious: Yes (Hospitalization, Other)
  Sender: FDA-Public Use
  Company Number: PHHY2018DE016134

PATIENT
  Age: 79 Year
  Sex: Male
  Weight: 100 kg

DRUGS (11)
  1. ALDACTONE [Suspect]
     Active Substance: SPIRONOLACTONE
     Indication: MICTURITION DISORDER
     Dosage: 50 MG, QD
     Route: 048
     Dates: start: 2014, end: 20180318
  2. XIPAMIDE [Concomitant]
     Active Substance: XIPAMIDE
     Indication: PRODUCT USED FOR UNKNOWN INDICATION
     Dosage: 10 MG, PRN
     Route: 048
  3. FALITHROM [Concomitant]
     Active Substance: PHENPROCOUMON
     Indication: PRODUCT USED FOR UNKNOWN INDICATION
     Dosage: 1.5 MG, QD
     Route: 048
     Dates: start: 2013
  4. KALINOR [Concomitant]
     Indication: MINERAL SUPPLEMENTATION
     Dosage: 2400 MG, QD
     Route: 048
     Dates: start: 201710
  5. AMIODARON 1A PHARMA [Suspect]
     Active Substance: AMIODARONE
     Indication: ARRHYTHMIA
     Dosage: 200 MG, QD
     Route: 048
     Dates: start: 201710
  6. TORASEMID 1A PHARMA [Suspect]
     Active Substance: TORSEMIDE
     Indication: MICTURITION DISORDER
     Dosage: 100 MG, QD
     Route: 048
     Dates: start: 201201
  7. BISOPROLOL 1A PHARMA [Concomitant]
     Active Substance: BISOPROLOL
     Indication: PRODUCT USED FOR UNKNOWN INDICATION
     Dosage: 10 MG, QD
     Route: 048
     Dates: start: 2010
  8. PANTOPRAZOLE [Concomitant]
     Active Substance: PANTOPRAZOLE
     Indication: HYPERCHLORHYDRIA
     Dosage: 40 MG, QD
     Route: 048
     Dates: start: 2012
  9. ALLOPURINOL. [Concomitant]
     Active Substance: ALLOPURINOL
     Indication: GOUT
     Dosage: 100 MG, QD
     Route: 048
     Dates: start: 2014
  10. VALSARTAN 1A PHARMA [Concomitant]
     Active Substance: VALSARTAN
     Indication: BLOOD PRESSURE MEASUREMENT
     Dosage: 40 MG, QD
     Route: 048
     Dates: start: 2014
  11. MAGNESIUM [Concomitant]
     Active Substance: MAGNESIUM
     Indication: MINERAL SUPPLEMENTATION
     Dosage: 100 MG, QD
     Route: 048
     Dates: start: 201710

REACTIONS (16)
  - Loss of consciousness [Unknown]
  - Cough [Not Recovered/Not Resolved]
  - Insulin-requiring type 2 diabetes mellitus [Unknown]
  - Renal disorder [Not Recovered/Not Resolved]
  - Weight increased [Not Recovered/Not Resolved]
  - General physical health deterioration [Not Recovered/Not Resolved]
  - Fatigue [Recovering/Resolving]
  - Increased bronchial secretion [Unknown]
  - Tachycardia [Not Recovered/Not Resolved]
  - Type 2 diabetes mellitus [Unknown]
  - Extrasystoles [Unknown]
  - Thirst [Not Recovered/Not Resolved]
  - Peripheral swelling [Unknown]
  - Arrhythmia [Not Recovered/Not Resolved]
  - Gout [Unknown]
  - Syncope [Unknown]

NARRATIVE: CASE EVENT DATE: 2013
